FAERS Safety Report 14412069 (Version 1)
Quarter: 2018Q1

REPORT INFORMATION
  Report Type: Spontaneous
  Country: US (occurrence: US)
  Receive Date: 20180117
  Receipt Date: 20180117
  Transmission Date: 20180509
  Serious: Yes (Other)
  Sender: FDA-Public Use
  Company Number: None

PATIENT
  Age: 50 Year
  Sex: Female
  Weight: 88.2 kg

DRUGS (8)
  1. DEXAMETHOSONE [Concomitant]
  2. IBRANCE [Suspect]
     Active Substance: PALBOCICLIB
     Indication: BREAST CANCER
     Route: 048
     Dates: start: 20171221
  3. MULTIVITAMIN [Concomitant]
     Active Substance: VITAMINS
  4. SPIRONOLACTONE. [Concomitant]
     Active Substance: SPIRONOLACTONE
  5. TRAZODONE [Concomitant]
     Active Substance: TRAZODONE HYDROCHLORIDE
  6. LASIX [Concomitant]
     Active Substance: FUROSEMIDE
  7. LACTULOSE. [Concomitant]
     Active Substance: LACTULOSE
  8. OXYCODONE [Concomitant]
     Active Substance: OXYCODONE

REACTIONS (1)
  - Cytopenia [None]
